FAERS Safety Report 9837541 (Version 1)
Quarter: 2014Q1

REPORT INFORMATION
  Report Type: Spontaneous
  Country: BR (occurrence: BR)
  Receive Date: 20140123
  Receipt Date: 20140123
  Transmission Date: 20141002
  Serious: Yes (Hospitalization)
  Sender: FDA-Public Use
  Company Number: BR-JNJFOC-20140109858

PATIENT
  Sex: Male

DRUGS (5)
  1. REMICADE [Suspect]
     Indication: CROHN^S DISEASE
     Route: 042
  2. REMICADE [Suspect]
     Indication: CROHN^S DISEASE
     Route: 042
     Dates: start: 2013
  3. FOLIC ACID [Concomitant]
     Route: 065
  4. RIVAROXABAN [Concomitant]
     Dosage: FILM COATED TABLET
     Route: 066
  5. FERROUS SULPHATE [Concomitant]
     Route: 065

REACTIONS (5)
  - Tuberculosis [Recovered/Resolved]
  - Atrophy [Not Recovered/Not Resolved]
  - Blood albumin abnormal [Recovered/Resolved]
  - Swelling [Not Recovered/Not Resolved]
  - Drug dose omission [Unknown]
